FAERS Safety Report 4608196-3 (Version None)
Quarter: 2005Q1

REPORT INFORMATION
  Report Type: 
  Country: None (occurrence: None)
  Receive Date: 20050311
  Receipt Date: 20050228
  Transmission Date: 20050727
  Serious: Yes (Death)
  Sender: FDA-Public Use
  Company Number: 2005026441

PATIENT
  Age: 68 Year
  Sex: Male
  Weight: 67 kg

DRUGS (9)
  1. CARDENALIN (DOXAZOSIN) [Suspect]
     Indication: HYPERTENSION
     Dosage: 4 MG (2 MG, 2 IN 1 D), ORAL
     Route: 048
     Dates: start: 20050121, end: 20050129
  2. MINIPRESS [Suspect]
     Indication: HYPERTENSION
     Dosage: 4 MG (2 MG 2 IN 1 D), ORAL
     Route: 048
     Dates: start: 20050117, end: 20050126
  3. METOPROLOL TARTRATE [Concomitant]
  4. NIFEDIPINE [Concomitant]
  5. VALSARTAN (VALSARTAN) [Concomitant]
  6. BENIDIPINE HYDROCHLORIDE (BENIDIPINE HYDROCHLORIDE) [Concomitant]
  7. TELMISARTAN (TELMISARTAN) [Concomitant]
  8. AMLODIPINE BESYLATE [Concomitant]
  9. LOSARTAN POTASSIUM [Concomitant]

REACTIONS (7)
  - BLOOD PRESSURE SYSTOLIC INCREASED [None]
  - DISSEMINATED INTRAVASCULAR COAGULATION [None]
  - DRUG HYPERSENSITIVITY [None]
  - HEPATIC FUNCTION ABNORMAL [None]
  - HEPATITIS [None]
  - MELAENA [None]
  - PRURITUS [None]
